FAERS Safety Report 5745322-7 (Version None)
Quarter: 2008Q2

REPORT INFORMATION
  Report Type: 
  Country: None (occurrence: None)
  Receive Date: 20080521
  Receipt Date: 20080509
  Transmission Date: 20081010
  Serious: Yes (Hospitalization, Other)
  Sender: FDA-Public Use
  Company Number: JP-ROCHE-549414

PATIENT
  Sex: Male
  Weight: 13 kg

DRUGS (2)
  1. TAMIFLU [Suspect]
     Indication: INFLUENZA
     Dosage: FORM: DRY SYRUP 3%.
     Route: 048
     Dates: start: 20080216, end: 20080218
  2. COCARL [Concomitant]
     Dosage: FORM: FINE GRANULE.
     Route: 048
     Dates: start: 20080216, end: 20080218

REACTIONS (4)
  - DIARRHOEA [None]
  - HEPATIC FUNCTION ABNORMAL [None]
  - STEVENS-JOHNSON SYNDROME [None]
  - VOMITING [None]
